FAERS Safety Report 12601143 (Version 2)
Quarter: 2016Q3

REPORT INFORMATION
  Report Type: Spontaneous
  Country: US (occurrence: US)
  Receive Date: 20160728
  Receipt Date: 20160729
  Transmission Date: 20161109
  Serious: Yes (Hospitalization)
  Sender: FDA-Public Use
  Company Number: US-ASTRAZENECA-2016SE80503

PATIENT
  Age: 67 Year
  Sex: Female
  Weight: 82 kg

DRUGS (11)
  1. HYDROCODONE [Concomitant]
     Active Substance: HYDROCODONE
     Indication: SCOLIOSIS
     Dosage: DAILY; 5/325 ONE DAY
     Dates: start: 2011
  2. AMBIEN [Concomitant]
     Active Substance: ZOLPIDEM TARTRATE
     Indication: SLEEP DISORDER
     Dates: start: 2006
  3. HYDROCODONE [Concomitant]
     Active Substance: HYDROCODONE
     Indication: BACK DISORDER
     Dosage: DAILY; 5/325 ONE DAY
     Dates: start: 2011
  4. PAROXETINE. [Concomitant]
     Active Substance: PAROXETINE
     Indication: STRESS
     Dates: start: 2006
  5. NEXIUM 24HR [Suspect]
     Active Substance: ESOMEPRAZOLE MAGNESIUM
     Indication: DYSPEPSIA
     Route: 048
     Dates: start: 201605, end: 20160628
  6. DILTIAZEM ER [Concomitant]
     Active Substance: DILTIAZEM
     Indication: HYPERTENSION
     Dosage: 180.0MG UNKNOWN
     Dates: start: 2012
  7. SULINDAC. [Concomitant]
     Active Substance: SULINDAC
     Indication: INFLAMMATION
     Dates: start: 2001
  8. VALSARTAN HCTZ [Concomitant]
     Active Substance: HYDROCHLOROTHIAZIDE\VALSARTAN
     Indication: HYPERTENSION
     Dosage: 150MG/25MG ONCE AT NIGHT
     Dates: start: 2012
  9. HYDROCODONE [Concomitant]
     Active Substance: HYDROCODONE
     Indication: SPINAL OPERATION
     Dosage: DAILY; 5/325 ONE DAY
     Dates: start: 2011
  10. ESTRADIOL. [Concomitant]
     Active Substance: ESTRADIOL
     Indication: HORMONE REPLACEMENT THERAPY
     Dates: start: 2014
  11. BAYER ASPIRIN [Concomitant]
     Active Substance: ASPIRIN
     Indication: THROMBOSIS
     Dates: start: 20150501

REACTIONS (4)
  - Condition aggravated [Recovering/Resolving]
  - Product use issue [Unknown]
  - Gastric disorder [Recovering/Resolving]
  - Drug ineffective [Recovering/Resolving]

NARRATIVE: CASE EVENT DATE: 201605
